FAERS Safety Report 21310075 (Version 1)
Quarter: 2022Q3

REPORT INFORMATION
  Report Type: Spontaneous
  Country: CA (occurrence: CA)
  Receive Date: 20220909
  Receipt Date: 20220909
  Transmission Date: 20221027
  Serious: Yes (Other)
  Sender: FDA-Public Use
  Company Number: CA-TEVA-2022-CA-2069816

PATIENT
  Age: 51 Year
  Sex: Female

DRUGS (13)
  1. CELECOXIB [Suspect]
     Active Substance: CELECOXIB
     Indication: Product used for unknown indication
     Route: 048
  2. METHOTREXATE [Suspect]
     Active Substance: METHOTREXATE
     Indication: Product used for unknown indication
     Dosage: THERAPY DURATION : 90.0 DAYS
     Route: 058
  3. METHOTREXATE [Suspect]
     Active Substance: METHOTREXATE
     Dosage: THERAPY DURATION : 90.0 DAYS
     Route: 030
  4. METHOTREXATE [Suspect]
     Active Substance: METHOTREXATE
     Dosage: THERAPY DURATION : 3.0 MONTHS
     Route: 030
  5. METHOTREXATE [Suspect]
     Active Substance: METHOTREXATE
     Dosage: THERAPY DURATION : 3.0 MONTHS
     Route: 058
  6. PANTOPRAZOLE [Suspect]
     Active Substance: PANTOPRAZOLE
     Indication: Product used for unknown indication
     Dosage: 40 MILLIGRAM DAILY;
     Route: 048
  7. FOLIC ACID [Suspect]
     Active Substance: FOLIC ACID
     Indication: Product used for unknown indication
     Dosage: 1 MILLIGRAM DAILY;
     Route: 048
  8. HYDROXYCHLOROQUINE [Concomitant]
     Active Substance: HYDROXYCHLOROQUINE
     Indication: Product used for unknown indication
     Dosage: THERAPY DURATION : 1.0 MONTHS
     Route: 048
  9. HYDROXYCHLOROQUINE [Concomitant]
     Active Substance: HYDROXYCHLOROQUINE
     Dosage: THERAPY DURATION : 30.0 DAYS
     Route: 048
  10. PREDNISONE [Concomitant]
     Active Substance: PREDNISONE
     Indication: Product used for unknown indication
     Dosage: THERAPY DURATION : 10.0 MONTHS
     Route: 048
  11. PREDNISONE [Concomitant]
     Active Substance: PREDNISONE
     Dosage: THERAPY DURATION : 300.0 DAYS
     Route: 048
  12. REMICADE [Concomitant]
     Active Substance: INFLIXIMAB
     Indication: Product used for unknown indication
     Route: 065
  13. SULFASALAZINE [Concomitant]
     Active Substance: SULFASALAZINE
     Indication: Product used for unknown indication
     Route: 048

REACTIONS (4)
  - Blindness [Unknown]
  - Spinal pain [Unknown]
  - Hepatic function abnormal [Unknown]
  - Product use issue [Unknown]
